FAERS Safety Report 19029615 (Version 3)
Quarter: 2021Q2

REPORT INFORMATION
  Report Type: Report from Study
  Country: None (occurrence: US)
  Receive Date: 20210318
  Receipt Date: 20210524
  Transmission Date: 20210717
  Serious: Yes (Other)
  Sender: FDA-Public Use
  Company Number: US-ABBVIE-21K-163-3819883-00

PATIENT
  Age: 64 Year
  Sex: Female

DRUGS (1)
  1. RINVOQ [Suspect]
     Active Substance: UPADACITINIB
     Indication: RHEUMATOID ARTHRITIS
     Route: 048

REACTIONS (7)
  - Head injury [Unknown]
  - Cerebral haemorrhage [Unknown]
  - Arthralgia [Unknown]
  - Fall [Unknown]
  - Limb injury [Unknown]
  - Foot operation [Unknown]
  - Fall [Unknown]

NARRATIVE: CASE EVENT DATE: 202104
